FAERS Safety Report 15842518 (Version 1)
Quarter: 2019Q1

REPORT INFORMATION
  Report Type: Report from Study
  Country: ES (occurrence: ES)
  Receive Date: 20190118
  Receipt Date: 20190118
  Transmission Date: 20190417
  Serious: Yes (Hospitalization)
  Sender: FDA-Public Use
  Company Number: ES-PFIZER INC-2019020362

PATIENT
  Age: 6 Year
  Sex: Female

DRUGS (8)
  1. DAUNORUBICIN HCL [Interacting]
     Active Substance: DAUNORUBICIN HYDROCHLORIDE
     Indication: ACUTE LYMPHOCYTIC LEUKAEMIA
     Dosage: 23 MG, WEEKLY
     Route: 042
     Dates: start: 20171101, end: 20171115
  2. SEPTRIN PAEDIATRIC [Concomitant]
     Active Substance: SULFAMETHOXAZOLE\TRIMETHOPRIM
     Indication: OPPORTUNISTIC INFECTION PROPHYLAXIS
     Dosage: 5.5 MG, 2X/DAY (EVERY 12 HOURS)
     Route: 048
     Dates: start: 20171025
  3. AMFOTERICINA B [Concomitant]
     Indication: OPPORTUNISTIC INFECTION PROPHYLAXIS
     Dosage: 18 MG, WEEKLY
     Route: 042
     Dates: start: 20171101, end: 20171122
  4. ONCASPAR [Interacting]
     Active Substance: PEGASPARGASE
     Indication: ACUTE LYMPHOCYTIC LEUKAEMIA
     Dosage: 760 IU, 1X/DAY
     Route: 030
     Dates: start: 20171106, end: 20171106
  5. METHYLPREDNISOLONE SODIUM SUCCINATE. [Interacting]
     Active Substance: METHYLPREDNISOLONE SODIUM SUCCINATE
     Indication: ACUTE LYMPHOCYTIC LEUKAEMIA
     Dosage: 23 MG, 2X/DAY (EVERY 12 HOURS)
     Route: 042
     Dates: start: 20171025
  6. ZOVIRAX [Concomitant]
     Active Substance: ACYCLOVIR
     Indication: OPPORTUNISTIC INFECTION PROPHYLAXIS
     Dosage: 2.3 MG, 3X/DAY (EVERY 8 HOURS)
     Route: 048
     Dates: start: 20171025
  7. OMEPRAZOL [Concomitant]
     Active Substance: OMEPRAZOLE
     Indication: PROPHYLAXIS AGAINST GASTROINTESTINAL ULCER
     Dosage: 18 MG, WEEKLY
     Route: 042
     Dates: start: 20171025
  8. VINCRISTINE SULFATE. [Suspect]
     Active Substance: VINCRISTINE SULFATE
     Indication: ACUTE LYMPHOCYTIC LEUKAEMIA
     Dosage: 1.1 MG, WEEKLY
     Route: 042
     Dates: start: 20171101, end: 20171115

REACTIONS (2)
  - Drug interaction [Recovered/Resolved]
  - Respiratory tract infection viral [Recovered/Resolved]

NARRATIVE: CASE EVENT DATE: 20171118
